FAERS Safety Report 8054184-7 (Version None)
Quarter: 2012Q1

REPORT INFORMATION
  Report Type: 
  Country: None (occurrence: None)
  Receive Date: 20120118
  Receipt Date: 20120117
  Transmission Date: 20120608
  Serious: Yes (Hospitalization)
  Sender: FDA-Public Use
  Company Number: EC-ROCHE-1031018

PATIENT
  Sex: Female
  Weight: 76.272 kg

DRUGS (1)
  1. BONIVA [Suspect]
     Indication: OSTEOPOROSIS
     Route: 048
     Dates: start: 20020216

REACTIONS (3)
  - VOMITING [None]
  - AMOEBIC DYSENTERY [None]
  - ABDOMINAL PAIN [None]
